FAERS Safety Report 4765529-5 (Version None)
Quarter: 2005Q3

REPORT INFORMATION
  Report Type: 
  Country: None (occurrence: None)
  Receive Date: 20050906
  Receipt Date: 20050829
  Transmission Date: 20060218
  Serious: Yes (Hospitalization)
  Sender: FDA-Public Use
  Company Number: 2005AL003382

PATIENT
  Age: 51 Year
  Sex: Female

DRUGS (3)
  1. SERAX [Suspect]
     Dosage: QD PO
     Route: 048
     Dates: start: 20000101
  2. MOGADON ({NULL}) [Suspect]
     Dosage: QD PO
     Route: 048
     Dates: start: 20000101
  3. EQUANIL [Suspect]
     Dosage: PO
     Route: 048
     Dates: start: 20000101

REACTIONS (4)
  - DRUG DEPENDENCE [None]
  - DRUG WITHDRAWAL SYNDROME [None]
  - FLUSHING [None]
  - HOT FLUSH [None]
